FAERS Safety Report 5066835-X (Version None)
Quarter: 2006Q3

REPORT INFORMATION
  Report Type: 
  Country: None (occurrence: None)
  Receive Date: 20060801
  Receipt Date: 20060628
  Transmission Date: 20061208
  Serious: Yes (Death, Hospitalization)
  Sender: FDA-Public Use
  Company Number: JP-AVENTIS-200612003JP

PATIENT
  Age: 57 Year
  Sex: Male

DRUGS (2)
  1. TAXOTERE [Suspect]
     Route: 041
  2. CISPLATIN [Concomitant]

REACTIONS (6)
  - BLOOD PRESSURE DECREASED [None]
  - ILEUS PARALYTIC [None]
  - INSOMNIA [None]
  - MESENTERIC ARTERY THROMBOSIS [None]
  - MULTI-ORGAN FAILURE [None]
  - RECTAL TENESMUS [None]
